FAERS Safety Report 21659249 (Version 1)
Quarter: 2022Q4

REPORT INFORMATION
  Report Type: Spontaneous
  Country: US (occurrence: None)
  Receive Date: 20221129
  Receipt Date: 20221129
  Transmission Date: 20230113
  Serious: Yes (Hospitalization)
  Sender: FDA-Public Use
  Company Number: None

PATIENT
  Sex: Male

DRUGS (13)
  1. NUCALA [Suspect]
     Active Substance: MEPOLIZUMAB
     Indication: Asthma
     Dosage: FREQUENCY : MONTHLY;?
     Route: 058
     Dates: start: 20201119
  2. NUCALA [Suspect]
     Active Substance: MEPOLIZUMAB
     Dosage: OTHER QUANTITY : 1 PEN;?FREQUENCY : MONTHLY;?
     Route: 058
  3. ASPIRIN [Concomitant]
     Active Substance: ASPIRIN
  4. ATORVASTATIN [Concomitant]
     Active Substance: ATORVASTATIN
  5. CLONIDINE [Concomitant]
     Active Substance: CLONIDINE
  6. FAMOTIDINE [Concomitant]
     Active Substance: FAMOTIDINE
  7. LISINOPRIL [Concomitant]
     Active Substance: LISINOPRIL
  8. VITAMINS [Concomitant]
     Active Substance: VITAMINS
  9. PROAIR [Concomitant]
  10. SPIRIVA [Concomitant]
     Active Substance: TIOTROPIUM BROMIDE MONOHYDRATE
  11. SYMBICORT [Concomitant]
     Active Substance: BUDESONIDE\FORMOTEROL FUMARATE DIHYDRATE
  12. VERAPAMIL [Concomitant]
     Active Substance: VERAPAMIL HYDROCHLORIDE
  13. VITAMIN C CHW [Concomitant]

REACTIONS (2)
  - Nonspecific reaction [None]
  - Asthma [None]
